FAERS Safety Report 5144823-2 (Version None)
Quarter: 2006Q4

REPORT INFORMATION
  Report Type: 
  Country: None (occurrence: None)
  Receive Date: 20061103
  Receipt Date: 20061103
  Transmission Date: 20070319
  Serious: Yes (Other)
  Sender: FDA-Public Use
  Company Number: None

PATIENT
  Age: 36 Year
  Sex: Male
  Weight: 89.7 kg

DRUGS (10)
  1. GABAPENTIN [Suspect]
     Indication: NEURALGIA
     Dosage: 100 MG TID PO
     Route: 048
     Dates: start: 20061025, end: 20061026
  2. GABAPENTIN [Suspect]
     Indication: NEURALGIA
     Dosage: 300 MG TID PO
     Route: 048
     Dates: start: 20061027, end: 20061031
  3. GABAPENTIN [Suspect]
     Indication: NEURALGIA
     Dosage: 300 MG TID PO
     Route: 048
     Dates: start: 20061027, end: 20061031
  4. BACLOFEN [Concomitant]
  5. CELEBREX [Concomitant]
  6. DIAZEPAM [Concomitant]
  7. DOCUSATE [Concomitant]
  8. METOPROLOL TARTRATE [Concomitant]
  9. PROTONIX [Concomitant]
  10. PAXIL [Concomitant]

REACTIONS (2)
  - MENTAL STATUS CHANGES [None]
  - PYREXIA [None]
